FAERS Safety Report 20233570 (Version 2)
Quarter: 2022Q1

REPORT INFORMATION
  Report Type: Spontaneous
  Country: CZ (occurrence: CZ)
  Receive Date: 20211227
  Receipt Date: 20220127
  Transmission Date: 20220424
  Serious: Yes (Hospitalization, Other)
  Sender: FDA-Public Use
  Company Number: CZ-NOVARTISPH-NVSC2021CZ297088

PATIENT
  Age: 57 Year
  Sex: Male
  Weight: 104.6 kg

DRUGS (5)
  1. METFORMIN [Suspect]
     Active Substance: METFORMIN HYDROCHLORIDE
     Indication: Type 2 diabetes mellitus
     Dosage: UNK (IN GRADUALLY INCREASING DOSES)
     Route: 048
  2. METFORMIN [Suspect]
     Active Substance: METFORMIN HYDROCHLORIDE
     Dosage: 3000 MG, QD (MAINTAINING THE ESTABLISHED DOSE OF METFORMIN FOR THE FOLLOWING FOUR-WEEK PERIOD)
     Route: 048
     Dates: start: 2019
  3. GLIMEPIRIDE [Suspect]
     Active Substance: GLIMEPIRIDE
     Indication: Type 2 diabetes mellitus
     Dosage: UNK (IN GRADUALLY INCREASING DOSES)
     Route: 048
  4. APIDRA SOLOSTAR [Concomitant]
     Active Substance: INSULIN GLULISINE
     Indication: Type 2 diabetes mellitus
     Dosage: UNK, TID (12-12-10 UNITS)
     Route: 058
     Dates: start: 2019
  5. LANTUS [Concomitant]
     Active Substance: INSULIN GLARGINE
     Indication: Type 2 diabetes mellitus
     Dosage: UNK (18 UNITS AT 21 HOURS)
     Route: 065
     Dates: start: 2019

REACTIONS (2)
  - Urinary tract infection [Unknown]
  - Treatment failure [Unknown]

NARRATIVE: CASE EVENT DATE: 20190101
